FAERS Safety Report 6110017-7 (Version None)
Quarter: 2009Q1

REPORT INFORMATION
  Report Type: 
  Country: None (occurrence: None)
  Receive Date: 20090310
  Receipt Date: 20081125
  Transmission Date: 20090719
  Serious: No
  Sender: FDA-Public Use
  Company Number: A0758094A

PATIENT
  Age: 35 Year
  Sex: Male

DRUGS (1)
  1. NICORETTE [Suspect]
     Dates: start: 20081123, end: 20081123

REACTIONS (1)
  - ORAL DISCOMFORT [None]
